FAERS Safety Report 8403625 (Version 4)
Quarter: 2013Q3

REPORT INFORMATION
  Report Type: Report from Study
  Country: AU (occurrence: AU)
  Receive Date: 20120213
  Receipt Date: 20130902
  Transmission Date: 20140515
  Serious: Yes (Other)
  Sender: FDA-Public Use
  Company Number: AU-ROCHE-1039287

PATIENT
  Age: 68 Year
  Sex: Female

DRUGS (2)
  1. RANIBIZUMAB [Suspect]
     Indication: AGE-RELATED MACULAR DEGENERATION
     Route: 050
     Dates: start: 20111018
  2. RANIBIZUMAB [Suspect]
     Route: 050
     Dates: start: 20120131

REACTIONS (3)
  - Age-related macular degeneration [Not Recovered/Not Resolved]
  - Transient ischaemic attack [Not Recovered/Not Resolved]
  - Visual acuity reduced [Not Recovered/Not Resolved]
